FAERS Safety Report 9768579 (Version 2)
Quarter: 2013Q4

REPORT INFORMATION
  Report Type: Spontaneous
  Country: BR (occurrence: BR)
  Receive Date: 20131218
  Receipt Date: 20131218
  Transmission Date: 20140711
  Serious: Yes (Hospitalization)
  Sender: FDA-Public Use
  Company Number: BR-AMGEN-BRASP2012030317

PATIENT
  Age: 65 Year
  Sex: Female
  Weight: 52 kg

DRUGS (5)
  1. ENBREL [Suspect]
     Indication: RHEUMATOID ARTHRITIS
     Dosage: 50 MG, WEEKLY
     Route: 065
     Dates: start: 201110, end: 201308
  2. ENBREL [Suspect]
     Dosage: UNK
     Route: 065
  3. BENICAR [Concomitant]
     Indication: BLOOD PRESSURE
     Dosage: UNK
  4. LOSARTAN [Concomitant]
     Indication: BLOOD PRESSURE
     Dosage: 50 MG, 2X/DAY
  5. ARAVA [Concomitant]
     Dosage: 20 MG, UNK

REACTIONS (3)
  - Pulmonary mass [Unknown]
  - Drug ineffective [Unknown]
  - Injection site pain [Unknown]
